FAERS Safety Report 7421954-5 (Version None)
Quarter: 2011Q2

REPORT INFORMATION
  Report Type: 
  Country: None (occurrence: None)
  Receive Date: 20110418
  Receipt Date: 20110412
  Transmission Date: 20111010
  Serious: Yes (Hospitalization)
  Sender: FDA-Public Use
  Company Number: US-ELI_LILLY_AND_COMPANY-US201104003890

PATIENT
  Sex: Female

DRUGS (3)
  1. PREDNISONE [Concomitant]
     Dosage: UNK
  2. LANTUS [Concomitant]
     Dosage: UNK
  3. HUMALOG [Suspect]
     Indication: DIABETES MELLITUS
     Dosage: UNK UNK, PRN

REACTIONS (4)
  - HOSPITALISATION [None]
  - NAUSEA [None]
  - MALAISE [None]
  - BLOOD GLUCOSE INCREASED [None]
